FAERS Safety Report 16836480 (Version 5)
Quarter: 2024Q2

REPORT INFORMATION
  Report Type: Spontaneous
  Country: FI (occurrence: FI)
  Receive Date: 20190921
  Receipt Date: 20240401
  Transmission Date: 20240716
  Serious: Yes (Other)
  Sender: FDA-Public Use
  Company Number: FI-SYNTHON BV-IN51PV19_49653

PATIENT
  Age: 34 Year
  Sex: Male

DRUGS (41)
  1. OLANZAPINE [Suspect]
     Active Substance: OLANZAPINE
     Indication: Autism spectrum disorder
     Dosage: 10 MILLIGRAM, ONCE A DAY
     Route: 065
     Dates: start: 2017
  2. OLANZAPINE [Suspect]
     Active Substance: OLANZAPINE
     Indication: Behaviour disorder
  3. OLANZAPINE [Suspect]
     Active Substance: OLANZAPINE
     Indication: Mental disorder
  4. AMITRIPTYLINE [Suspect]
     Active Substance: AMITRIPTYLINE
     Indication: Behaviour disorder
     Dosage: UNK
     Route: 065
  5. AMITRIPTYLINE [Suspect]
     Active Substance: AMITRIPTYLINE
     Indication: Mental disorder
  6. AMITRIPTYLINE [Suspect]
     Active Substance: AMITRIPTYLINE
     Indication: Autism spectrum disorder
  7. BISOPROLOL [Suspect]
     Active Substance: BISOPROLOL\BISOPROLOL FUMARATE
     Indication: Prophylaxis
     Dosage: UNK
     Route: 065
  8. BISOPROLOL [Suspect]
     Active Substance: BISOPROLOL\BISOPROLOL FUMARATE
     Indication: Behaviour disorder
  9. CANDESARTAN [Suspect]
     Active Substance: CANDESARTAN
     Indication: Behaviour disorder
     Dosage: 16 MILLIGRAM, ONCE A DAY
     Route: 065
     Dates: start: 2017
  10. CANDESARTAN [Suspect]
     Active Substance: CANDESARTAN
     Indication: Prophylaxis
  11. CARBAMAZEPINE [Suspect]
     Active Substance: CARBAMAZEPINE
     Indication: Behaviour disorder
     Dosage: UNK
     Route: 065
  12. CARBAMAZEPINE [Suspect]
     Active Substance: CARBAMAZEPINE
     Indication: Seizure
  13. CITALOPRAM [Suspect]
     Active Substance: CITALOPRAM\CITALOPRAM HYDROBROMIDE
     Indication: Behaviour disorder
     Dosage: UNK
     Route: 065
  14. CITALOPRAM [Suspect]
     Active Substance: CITALOPRAM\CITALOPRAM HYDROBROMIDE
     Indication: Mental disorder
  15. CITALOPRAM [Suspect]
     Active Substance: CITALOPRAM\CITALOPRAM HYDROBROMIDE
     Indication: Autism spectrum disorder
  16. ESCITALOPRAM [Suspect]
     Active Substance: ESCITALOPRAM OXALATE
     Indication: Mental disorder
     Dosage: 10 MILLIGRAM, ONCE A DAY
     Route: 065
     Dates: start: 2017
  17. ESCITALOPRAM [Suspect]
     Active Substance: ESCITALOPRAM OXALATE
     Indication: Autism spectrum disorder
  18. ESCITALOPRAM [Suspect]
     Active Substance: ESCITALOPRAM OXALATE
     Indication: Behaviour disorder
  19. LEVOMEPROMAZINE [Suspect]
     Active Substance: LEVOMEPROMAZINE
     Indication: Behaviour disorder
     Dosage: 100 MILLIGRAM, ONCE A DAY
     Route: 065
     Dates: start: 2017
  20. LEVOMEPROMAZINE [Suspect]
     Active Substance: LEVOMEPROMAZINE
     Indication: Autism spectrum disorder
  21. LEVOMEPROMAZINE [Suspect]
     Active Substance: LEVOMEPROMAZINE
     Indication: Mental disorder
  22. LORAZEPAM [Suspect]
     Active Substance: LORAZEPAM
     Indication: Behaviour disorder
     Dosage: 3 MILLIGRAM, ONCE A DAY
     Route: 065
     Dates: start: 2017
  23. LORAZEPAM [Suspect]
     Active Substance: LORAZEPAM
     Indication: Autism spectrum disorder
  24. LORAZEPAM [Suspect]
     Active Substance: LORAZEPAM
     Indication: Mental disorder
  25. POLYETHYLENE GLYCOL 3350 [Suspect]
     Active Substance: POLYETHYLENE GLYCOL 3350
     Indication: Behaviour disorder
     Dosage: 3 DOSAGE FORM, ONCE A DAY, (3 SACHETS PER DAY)
     Route: 065
  26. METOPROLOL [Suspect]
     Active Substance: METOPROLOL
     Indication: Prophylaxis
     Dosage: UNK
     Route: 065
  27. METOPROLOL [Suspect]
     Active Substance: METOPROLOL
     Indication: Behaviour disorder
  28. MELATONIN [Suspect]
     Active Substance: MELATONIN
     Indication: Behaviour disorder
     Dosage: 3 MILLIGRAM, ONCE A DAY
     Route: 065
     Dates: start: 2017
  29. OXCARBAZEPINE [Suspect]
     Active Substance: OXCARBAZEPINE
     Indication: Seizure
     Dosage: 900 MILLIGRAM, ONCE A DAY
     Route: 065
  30. PANTOPRAZOLE [Suspect]
     Active Substance: PANTOPRAZOLE
     Indication: Behaviour disorder
     Dosage: 20 MILLIGRAM, ONCE A DAY
     Route: 065
     Dates: start: 2017
  31. QUETIAPINE [Suspect]
     Active Substance: QUETIAPINE
     Indication: Behaviour disorder
     Dosage: UNK
     Route: 065
  32. QUETIAPINE [Suspect]
     Active Substance: QUETIAPINE
     Indication: Autism spectrum disorder
  33. QUETIAPINE [Suspect]
     Active Substance: QUETIAPINE
     Indication: Mental disorder
  34. RISPERIDONE [Suspect]
     Active Substance: RISPERIDONE
     Indication: Behaviour disorder
     Dosage: 3 MILLIGRAM, ONCE A DAY
     Route: 065
  35. RISPERIDONE [Suspect]
     Active Substance: RISPERIDONE
     Indication: Mental disorder
     Dosage: 4 MILLIGRAM, ONCE A DAY
     Route: 065
     Dates: start: 2017
  36. RISPERIDONE [Suspect]
     Active Substance: RISPERIDONE
     Indication: Autism spectrum disorder
  37. TOPIRAMATE [Suspect]
     Active Substance: TOPIRAMATE
     Indication: Behaviour disorder
     Dosage: UNK
     Route: 065
     Dates: start: 2015
  38. TOPIRAMATE [Suspect]
     Active Substance: TOPIRAMATE
     Indication: Prophylaxis
  39. VALPROATE SODIUM [Suspect]
     Active Substance: VALPROATE SODIUM
     Indication: Migraine prophylaxis
     Dosage: 1200 MILLIGRAM, ONCE A DAY
     Route: 065
  40. VALPROATE SODIUM [Suspect]
     Active Substance: VALPROATE SODIUM
     Indication: Seizure
  41. VALPROATE SODIUM [Suspect]
     Active Substance: VALPROATE SODIUM
     Indication: Affective disorder

REACTIONS (10)
  - Aggression [Not Recovered/Not Resolved]
  - Multiple drug therapy [Not Recovered/Not Resolved]
  - Behaviour disorder [Not Recovered/Not Resolved]
  - Self-destructive behaviour [Not Recovered/Not Resolved]
  - Condition aggravated [Not Recovered/Not Resolved]
  - Intentional product use issue [Not Recovered/Not Resolved]
  - Drug ineffective for unapproved indication [Not Recovered/Not Resolved]
  - Product use in unapproved indication [Unknown]
  - Drug ineffective [Unknown]
  - Off label use [Unknown]

NARRATIVE: CASE EVENT DATE: 20150101
